FAERS Safety Report 8361480-2 (Version None)
Quarter: 2012Q2

REPORT INFORMATION
  Report Type: 
  Country: None (occurrence: None)
  Receive Date: 20120515
  Receipt Date: 20120511
  Transmission Date: 20120825
  Serious: Yes (Hospitalization)
  Sender: FDA-Public Use
  Company Number: US-B.I. PHARMACEUTICALS,INC./RIDGEFIELD-2012-BP-10634BP

PATIENT
  Sex: Female

DRUGS (4)
  1. COMBIVENT [Concomitant]
     Indication: ASTHMA
     Route: 055
  2. PRADAXA [Suspect]
     Indication: ATRIAL FIBRILLATION
     Dosage: 300 MG
     Route: 048
     Dates: start: 20111201
  3. SYNTHROID [Concomitant]
     Indication: HYPOTHYROIDISM
     Route: 048
  4. SYMBICORT [Concomitant]
     Indication: ASTHMA
     Route: 055

REACTIONS (3)
  - HAEMATURIA [None]
  - LUNG INFECTION [None]
  - NEPHROLITHIASIS [None]
